FAERS Safety Report 8203418 (Version 3)
Quarter: 2014Q3

REPORT INFORMATION
  Report Type: Report from Study
  Country: RU (occurrence: RU)
  Receive Date: 20111027
  Receipt Date: 20140805
  Transmission Date: 20150326
  Serious: Yes (Hospitalization, Disabling)
  Sender: FDA-Public Use
  Company Number: PHHO2011RU17633

PATIENT

DRUGS (7)
  1. CONCOR [Concomitant]
     Active Substance: BISOPROLOL FUMARATE
     Indication: MYOCARDIAL ISCHAEMIA
     Dosage: 5 MG, UNK
     Route: 048
     Dates: start: 2010, end: 20111009
  2. DIABETON [Concomitant]
     Indication: DIABETES MELLITUS
     Dosage: 60 MG, UNK
     Route: 048
     Dates: start: 2010, end: 20111009
  3. ENALAPRIL [Suspect]
     Active Substance: ENALAPRIL
     Indication: CARDIAC FAILURE CHRONIC
     Dosage: 10 MG, BID
     Route: 048
     Dates: start: 20110913
  4. CARDEPINE [Concomitant]
     Indication: HYPERTENSION
     Dosage: 40 MG, BID
     Route: 048
     Dates: start: 2010, end: 20111009
  5. THROMBO ASS [Concomitant]
     Active Substance: ASPIRIN
     Indication: CARDIOVASCULAR DISORDER
     Dosage: 100 MG, UNK
     Route: 048
     Dates: start: 2010, end: 20111009
  6. FUROSEMIDE. [Suspect]
     Active Substance: FUROSEMIDE
     Indication: CARDIAC FAILURE CHRONIC
     Dosage: 40 MG, UNK
     Route: 048
     Dates: start: 2010, end: 20111009
  7. MONOCINQUE [Concomitant]
     Active Substance: ISOSORBIDE MONONITRATE
     Indication: ANGINA PECTORIS
     Dosage: 40 MG, UNK
     Route: 048
     Dates: start: 2010, end: 20111009

REACTIONS (2)
  - Ischaemic stroke [Recovering/Resolving]
  - Concomitant disease progression [Recovering/Resolving]

NARRATIVE: CASE EVENT DATE: 20111009
